FAERS Safety Report 10067404 (Version 2)
Quarter: 2014Q2

REPORT INFORMATION
  Report Type: Report from Study
  Country: FR (occurrence: FR)
  Receive Date: 20140409
  Receipt Date: 20140527
  Transmission Date: 20141212
  Serious: Yes (Hospitalization)
  Sender: FDA-Public Use
  Company Number: FR-ROCHE-1374356

PATIENT
  Age: 70 Year
  Sex: 0

DRUGS (5)
  1. PERTUZUMAB [Suspect]
     Indication: BREAST CANCER
     Dosage: LOADING DOSE, LAST DOSE PRIOR TO AE 04/MAR/2014
     Route: 042
     Dates: start: 20140304, end: 20140304
  2. PERTUZUMAB [Suspect]
     Route: 042
     Dates: start: 20140411
  3. TRASTUZUMAB [Suspect]
     Indication: BREAST CANCER
     Dosage: LOADING DOSE, LAST DOSE PRIOR TO AE 04/MAR/2014
     Route: 042
     Dates: start: 20140304, end: 20140304
  4. TRASTUZUMAB [Suspect]
     Route: 042
     Dates: start: 20140411
  5. SIMVASTATIN [Concomitant]
     Dosage: DOSE: 1 CP
     Route: 048
     Dates: start: 2008

REACTIONS (1)
  - Atrial fibrillation [Recovered/Resolved]
